FAERS Safety Report 24891183 (Version 2)
Quarter: 2025Q1

REPORT INFORMATION
  Report Type: Report from Study
  Country: JP (occurrence: JP)
  Receive Date: 20250127
  Receipt Date: 20250205
  Transmission Date: 20250408
  Serious: Yes (Death)
  Sender: PFIZER
  Company Number: JP-PFIZER INC-202400326053

PATIENT
  Age: 78 Year
  Sex: Female
  Weight: 58.8 kg

DRUGS (12)
  1. ELRANATAMAB [Suspect]
     Active Substance: ELRANATAMAB
     Indication: Plasma cell myeloma
     Route: 058
     Dates: start: 20241209, end: 20241209
  2. ACTEMRA [Suspect]
     Active Substance: TOCILIZUMAB
     Indication: Cytokine release syndrome
     Route: 042
     Dates: start: 20241211, end: 20241211
  3. LANSOPRAZOLE [Concomitant]
     Active Substance: LANSOPRAZOLE
     Indication: Gastric ulcer
     Route: 048
     Dates: start: 20220520, end: 20250103
  4. CALCIUM CARBONATE\CHOLECALCIFEROL\MAGNESIUM CARBONATE [Concomitant]
     Active Substance: CALCIUM CARBONATE\CHOLECALCIFEROL\MAGNESIUM CARBONATE
     Indication: Osteoporosis
     Route: 048
     Dates: start: 20230926, end: 20250103
  5. BISOPROLOL FUMARATE [Concomitant]
     Active Substance: BISOPROLOL FUMARATE
     Indication: Hypertrophic cardiomyopathy
     Route: 048
     Dates: start: 20220520, end: 20250103
  6. AZILSARTAN KAMEDOXOMIL [Concomitant]
     Active Substance: AZILSARTAN KAMEDOXOMIL
     Indication: Hypertension
     Route: 048
     Dates: start: 20221208, end: 20250103
  7. AMLODIPINE [Concomitant]
     Active Substance: AMLODIPINE BESYLATE
     Indication: Hypertension
     Route: 048
     Dates: start: 20200304, end: 20250103
  8. SULFAMETHOXAZOLE\TRIMETHOPRIM [Concomitant]
     Active Substance: SULFAMETHOXAZOLE\TRIMETHOPRIM
     Indication: Pneumocystis jirovecii pneumonia
     Route: 048
     Dates: start: 20200304, end: 20250103
  9. TRICHLORMETHIAZIDE [Concomitant]
     Active Substance: TRICHLORMETHIAZIDE
     Indication: Oedema
     Route: 048
     Dates: start: 20230105, end: 20250103
  10. EPINASTINE [Concomitant]
     Active Substance: EPINASTINE
     Indication: Seasonal allergy
     Route: 048
     Dates: start: 20221125, end: 20250103
  11. ENTECAVIR [Concomitant]
     Active Substance: ENTECAVIR
     Indication: Hepatitis B
     Route: 048
     Dates: start: 20200304, end: 20250103
  12. ACYCLOVIR [Concomitant]
     Active Substance: ACYCLOVIR
     Indication: Antiviral prophylaxis
     Route: 048
     Dates: start: 20200528, end: 20250103

REACTIONS (1)
  - Pneumonia influenzal [Fatal]

NARRATIVE: CASE EVENT DATE: 20241215
